FAERS Safety Report 9308833 (Version 4)
Quarter: 2013Q3

REPORT INFORMATION
  Report Type: Spontaneous
  Country: US (occurrence: US)
  Receive Date: 20130524
  Receipt Date: 20130726
  Transmission Date: 20140515
  Serious: No
  Sender: FDA-Public Use
  Company Number: US-009507513-1305USA013965

PATIENT
  Age: 52 Year
  Sex: Female

DRUGS (4)
  1. PEGINTRON [Suspect]
     Indication: HEPATITIS C
     Dosage: REDIPEN
     Dates: start: 20130517
  2. REBETOL [Suspect]
     Indication: HEPATITIS C
     Dosage: UNK, QD
     Dates: start: 20130517, end: 20130611
  3. REBETOL [Suspect]
     Dosage: ONCE A DAY
     Dates: start: 20130611
  4. VICTRELIS [Suspect]
     Indication: HEPATITIS C
     Dosage: UNK
     Dates: start: 20130612

REACTIONS (17)
  - Anaemia [Unknown]
  - Muscle spasms [Unknown]
  - Musculoskeletal stiffness [Unknown]
  - Pain [Unknown]
  - Dysgeusia [Unknown]
  - Vomiting [Unknown]
  - Back pain [Unknown]
  - Inappropriate schedule of drug administration [Unknown]
  - Disturbance in attention [Unknown]
  - Insomnia [Unknown]
  - Malaise [Unknown]
  - Pyrexia [Unknown]
  - Chills [Unknown]
  - Nausea [Unknown]
  - Abdominal pain upper [Unknown]
  - Nausea [Unknown]
  - Haemoglobin decreased [Unknown]
